FAERS Safety Report 10562359 (Version 1)
Quarter: 2014Q4

REPORT INFORMATION
  Report Type: Report from Study
  Country: US (occurrence: US)
  Receive Date: 20141104
  Receipt Date: 20141104
  Transmission Date: 20150529
  Serious: Yes (Death)
  Sender: FDA-Public Use
  Company Number: PHEH2014US021793

PATIENT
  Sex: Male

DRUGS (2)
  1. SIGNIFOR [Suspect]
     Active Substance: PASIREOTIDE
     Indication: CUSHING^S SYNDROME
     Dosage: 600 UG, BID
     Route: 058
  2. SIGNIFOR [Suspect]
     Active Substance: PASIREOTIDE
     Indication: OFF LABEL USE

REACTIONS (2)
  - Drug ineffective [Unknown]
  - Death [Fatal]
